FAERS Safety Report 8838736 (Version 1)
Quarter: 2012Q4

REPORT INFORMATION
  Report Type: 
  Country: US (occurrence: US)
  Receive Date: 20121012
  Receipt Date: 20121012
  Transmission Date: 20130627
  Serious: Yes (Hospitalization, Other)
  Sender: FDA-Public Use
  Company Number: US-009507513-1209USA000723

PATIENT
  Sex: Female

DRUGS (3)
  1. REBETOL [Suspect]
     Indication: HEPATITIS C
     Dosage: UNK
     Route: 048
     Dates: start: 19980101, end: 19980701
  2. REBETOL [Suspect]
     Dosage: UNK
     Route: 048
     Dates: start: 19990101, end: 19990604
  3. INTRONA [Suspect]
     Dosage: UNK
     Dates: start: 19990101, end: 19990604

REACTIONS (10)
  - Hepatic cirrhosis [Unknown]
  - Vomiting [Unknown]
  - Dehydration [Unknown]
  - Splenomegaly [Unknown]
  - Hepatomegaly [Unknown]
  - Blood bilirubin increased [Unknown]
  - White blood cell count decreased [Unknown]
  - Platelet count decreased [Unknown]
  - Drug ineffective [Unknown]
  - Drug ineffective [Unknown]
